FAERS Safety Report 12356520 (Version 2)
Quarter: 2016Q2

REPORT INFORMATION
  Report Type: Report from Study
  Country: BR (occurrence: BR)
  Receive Date: 20160511
  Receipt Date: 20160606
  Transmission Date: 20160815
  Serious: Yes (Other)
  Sender: FDA-Public Use
  Company Number: BR-JNJFOC-20160508270

PATIENT
  Sex: Female
  Weight: 113 kg

DRUGS (1)
  1. REMICADE [Suspect]
     Active Substance: INFLIXIMAB
     Indication: CROHN^S DISEASE
     Dosage: STARTED IN AUG OR SEP 2015
     Route: 042
     Dates: start: 2015

REACTIONS (3)
  - Frequent bowel movements [Unknown]
  - Weight decreased [Unknown]
  - Drug ineffective [Unknown]
